FAERS Safety Report 6883302-9 (Version None)
Quarter: 2010Q3

REPORT INFORMATION
  Report Type: 
  Country: None (occurrence: None)
  Receive Date: 20100727
  Receipt Date: 20071004
  Transmission Date: 20110219
  Serious: Yes (Hospitalization, Other)
  Sender: FDA-Public Use
  Company Number: US-PFIZER INC-2006118505

PATIENT
  Sex: Female
  Weight: 90.7 kg

DRUGS (7)
  1. CELEBREX [Suspect]
     Indication: PAIN
     Dates: start: 20011201, end: 20020507
  2. VIOXX [Suspect]
     Indication: OSTEOARTHRITIS
     Dates: start: 20010409, end: 20011214
  3. NORVASC [Concomitant]
     Indication: HYPERTENSION
     Dates: start: 19990101, end: 20040501
  4. LASIX [Concomitant]
     Indication: OEDEMA PERIPHERAL
     Dates: start: 19990101, end: 20040501
  5. WARFARIN [Concomitant]
     Indication: DEEP VEIN THROMBOSIS
     Dates: start: 19990101
  6. ACETYLSALICYLIC ACID SRT [Concomitant]
     Indication: TRANSIENT ISCHAEMIC ATTACK
     Dates: start: 19990101, end: 20040501
  7. ACETYLSALICYLIC ACID SRT [Concomitant]
     Indication: OSTEOARTHRITIS

REACTIONS (1)
  - DEEP VEIN THROMBOSIS [None]
